FAERS Safety Report 5754094-1 (Version None)
Quarter: 2008Q2

REPORT INFORMATION
  Report Type: 
  Country: None (occurrence: None)
  Receive Date: 20080530
  Receipt Date: 20080526
  Transmission Date: 20081010
  Serious: Yes (Death, Hospitalization)
  Sender: FDA-Public Use
  Company Number: PHHY2008FR08639

PATIENT
  Sex: Female

DRUGS (5)
  1. FEMARA [Suspect]
     Indication: BREAST CANCER
     Dosage: 2.5 MG, QD
     Route: 048
     Dates: start: 20070901, end: 20080420
  2. COUMADIN [Suspect]
     Dates: start: 20050101, end: 20080424
  3. VASTAREL [Suspect]
     Dosage: 35 MG, BID
     Dates: end: 20080424
  4. AMITRIPTYLINE HCL [Suspect]
     Dosage: 7 DROPS DAILY
     Dates: end: 20080424
  5. DAFLON [Suspect]
     Dosage: 500 MG, BID
     Dates: end: 20080424

REACTIONS (7)
  - AMNESIA [None]
  - BRAIN OEDEMA [None]
  - BRAIN SCAN ABNORMAL [None]
  - CEREBRAL HAEMATOMA [None]
  - COMA [None]
  - GLASGOW COMA SCALE ABNORMAL [None]
  - INTERNATIONAL NORMALISED RATIO INCREASED [None]
